FAERS Safety Report 10502455 (Version 3)
Quarter: 2014Q4

REPORT INFORMATION
  Report Type: Report from Study
  Country: US (occurrence: US)
  Receive Date: 20141007
  Receipt Date: 20141230
  Transmission Date: 20150528
  Serious: Yes (Other)
  Sender: FDA-Public Use
  Company Number: US-ALEXION-A201403871

PATIENT

DRUGS (1)
  1. SOLIRIS [Suspect]
     Active Substance: ECULIZUMAB
     Indication: PRODUCT USED FOR UNKNOWN INDICATION
     Route: 042

REACTIONS (4)
  - Kidney infection [Unknown]
  - Cystitis [Unknown]
  - Haemoglobin abnormal [Unknown]
  - Chromaturia [Unknown]

NARRATIVE: CASE EVENT DATE: 2014
